FAERS Safety Report 6974501-6 (Version None)
Quarter: 2010Q3

REPORT INFORMATION
  Report Type: 
  Country: None (occurrence: None)
  Receive Date: 20100909
  Receipt Date: 20100902
  Transmission Date: 20110219
  Serious: Yes (Other)
  Sender: FDA-Public Use
  Company Number: JP-MERCK-1008USA03570

PATIENT
  Sex: Female
  Weight: 83 kg

DRUGS (7)
  1. JANUVIA [Suspect]
     Indication: DIABETES MELLITUS
     Route: 048
     Dates: start: 20100323
  2. NORVASC [Suspect]
     Indication: HYPERTENSION
     Route: 048
  3. LIPITOR [Suspect]
     Indication: HYPERLIPIDAEMIA
     Route: 048
  4. DIOVAN [Suspect]
     Indication: HYPERTENSION
     Route: 048
  5. METFORMIN HCL [Suspect]
     Indication: DIABETES MELLITUS
     Route: 048
  6. WARFARIN [Suspect]
     Indication: ATRIAL FIBRILLATION
     Dosage: DIVIDED DOSAGE FREQUENCY
     Route: 048
  7. FASTIC [Concomitant]
     Indication: HYPERTENSION
     Route: 048
     Dates: end: 20100322

REACTIONS (1)
  - HERPES ZOSTER [None]
